FAERS Safety Report 4604175-0 (Version None)
Quarter: 2005Q1

REPORT INFORMATION
  Report Type: 
  Country: None (occurrence: None)
  Receive Date: 20050308
  Receipt Date: 20050308
  Transmission Date: 20050727
  Serious: Yes (Life-Threatening, Disabling)
  Sender: FDA-Public Use
  Company Number: None

PATIENT
  Age: 49 Year
  Sex: Female
  Weight: 81.6475 kg

DRUGS (3)
  1. ZOLOFT [Suspect]
     Indication: ANXIETY
     Dosage: 100 MG TWICE A DAY
  2. ZOLOFT [Suspect]
     Indication: DEPRESSION
     Dosage: 100 MG TWICE A DAY
  3. ZOLOFT [Suspect]
     Indication: REFLUX OESOPHAGITIS
     Dosage: 100 MG TWICE A DAY

REACTIONS (2)
  - ADVERSE EVENT [None]
  - OVERDOSE [None]
